FAERS Safety Report 4274208-2 (Version None)
Quarter: 2004Q1

REPORT INFORMATION
  Report Type: 
  Country: None (occurrence: None)
  Receive Date: 20040115
  Receipt Date: 20040105
  Transmission Date: 20041129
  Serious: Yes (Life-Threatening)
  Sender: FDA-Public Use
  Company Number: 03P-056-0245450-00

PATIENT
  Age: 48 Year
  Sex: Female
  Weight: 84 kg

DRUGS (6)
  1. HUMIRA [Suspect]
     Indication: RHEUMATOID ARTHRITIS
     Dosage: SEE IMAGE
     Dates: start: 20030626, end: 20030918
  2. HUMIRA [Suspect]
     Indication: RHEUMATOID ARTHRITIS
     Dosage: SEE IMAGE
     Dates: start: 20030918
  3. PREDNISONE [Suspect]
     Indication: RHEUMATOID ARTHRITIS
     Dosage: 10 MG, PER ORAL
     Route: 048
     Dates: start: 20030715
  4. METHOTREXATE [Suspect]
  5. RIFAMPIN [Concomitant]
  6. HYDROCHLOROQUINE [Concomitant]

REACTIONS (2)
  - BREAST NEOPLASM [None]
  - CHONDROPATHY [None]
